FAERS Safety Report 8896359 (Version 1)
Quarter: 2012Q4

REPORT INFORMATION
  Report Type: Spontaneous
  Country: US (occurrence: None)
  Receive Date: 20121107
  Receipt Date: 20121107
  Transmission Date: 20130627
  Serious: Yes (Death)
  Sender: FDA-Public Use
  Company Number: None

PATIENT
  Age: 77 Year
  Sex: Male
  Weight: 78 kg

DRUGS (10)
  1. ATENOLOL [Concomitant]
  2. DSS [Concomitant]
  3. FUROSEMIDE [Concomitant]
  4. LISINOPRIL [Concomitant]
  5. PANTOPRAZOLE [Concomitant]
  6. POTASSIUM [Concomitant]
  7. ROSUVASTATIN [Concomitant]
  8. WARFARIN [Suspect]
     Indication: ATRIAL FIBRILLATION
     Dosage: 2 mg daily po
     Route: 048
     Dates: start: 20110101, end: 20120806
  9. AMIODARONE [Concomitant]
  10. ASA [Concomitant]

REACTIONS (3)
  - Haemorrhage intracranial [None]
  - Subdural haemorrhage [None]
  - Brain herniation [None]
